FAERS Safety Report 4324809-8 (Version None)
Quarter: 2004Q1

REPORT INFORMATION
  Report Type: 
  Country: None (occurrence: None)
  Receive Date: 20040326
  Receipt Date: 20040316
  Transmission Date: 20041129
  Serious: Yes (Hospitalization)
  Sender: FDA-Public Use
  Company Number: FR-GLAXOSMITHKLINE-B0327220A

PATIENT
  Age: 2 Day
  Sex: Male
  Weight: 3 kg

DRUGS (1)
  1. DEROXAT [Suspect]
     Indication: ANXIETY
     Dosage: 20MG PER DAY
     Dates: start: 20030107

REACTIONS (4)
  - CONVULSION NEONATAL [None]
  - DRUG EXPOSURE DURING PREGNANCY [None]
  - DRUG WITHDRAWAL SYNDROME NEONATAL [None]
  - TREMOR [None]
